FAERS Safety Report 5067879-4 (Version None)
Quarter: 2006Q3

REPORT INFORMATION
  Report Type: 
  Country: None (occurrence: None)
  Receive Date: 20060714
  Receipt Date: 20060426
  Transmission Date: 20061208
  Serious: Yes (Other)
  Sender: FDA-Public Use
  Company Number: HQWYE108902MAY06

PATIENT
  Age: 37 Year
  Sex: Female
  Weight: 61.29 kg

DRUGS (2)
  1. ADVIL [Suspect]
     Indication: HEADACHE
     Dosage: 1 TABLET X 1,  ORAL
     Route: 048
     Dates: start: 20060422, end: 20060422
  2. COPAXONE [Concomitant]

REACTIONS (2)
  - HYPERSENSITIVITY [None]
  - SWELLING FACE [None]
